FAERS Safety Report 18765756 (Version 2)
Quarter: 2021Q1

REPORT INFORMATION
  Report Type: Spontaneous
  Country: US (occurrence: US)
  Receive Date: 20210121
  Receipt Date: 20210216
  Transmission Date: 20210419
  Serious: No
  Sender: FDA-Public Use
  Company Number: US-BLUEPRINT MEDICINES CORPORATION-SP-US-2021-000030

PATIENT
  Sex: Female

DRUGS (1)
  1. GAVRETO [Suspect]
     Active Substance: PRALSETINIB
     Indication: LUNG NEOPLASM MALIGNANT
     Route: 048
     Dates: start: 20201217

REACTIONS (6)
  - Face oedema [Unknown]
  - Pyrexia [Unknown]
  - Dysuria [Unknown]
  - Dyspnoea [Unknown]
  - Swelling [Unknown]
  - Alopecia [Unknown]
